FAERS Safety Report 7999476-2 (Version None)
Quarter: 2011Q4

REPORT INFORMATION
  Report Type: 
  Country: None (occurrence: None)
  Receive Date: 20111221
  Receipt Date: 20111219
  Transmission Date: 20120403
  Serious: Yes (Hospitalization)
  Sender: FDA-Public Use
  Company Number: HK-AMGEN-HKGCT2011067552

PATIENT
  Age: 49 Year
  Sex: Female

DRUGS (8)
  1. BLINDED DENOSUMAB [Suspect]
     Indication: BREAST CANCER
     Dosage: UNK, Q3WK
     Route: 058
     Dates: start: 20111010
  2. G CSFPCGEN [Concomitant]
     Indication: BREAST CANCER
     Dosage: UNK
     Route: 058
     Dates: start: 20111215
  3. DIAMICRON [Concomitant]
     Dosage: 30 MG, QD
     Route: 048
     Dates: start: 20111207
  4. BLINDED PLACEBO [Suspect]
     Indication: BREAST CANCER
     Dosage: UNK, Q3WK
     Route: 058
     Dates: start: 20111010
  5. CALPEROS D3 [Concomitant]
     Dosage: UNK UNK, QD
     Route: 048
     Dates: start: 20111010
  6. METFORMIN HCL [Concomitant]
     Dosage: 500 MG, BID
     Route: 048
     Dates: start: 20111207
  7. LISINOPRIL [Concomitant]
     Dosage: 5 MG, QD
     Route: 048
     Dates: start: 20111207
  8. TAXOTERE [Concomitant]
     Indication: BREAST CANCER
     Dosage: 125 MG, Q3WK
     Route: 042
     Dates: start: 20111213

REACTIONS (1)
  - CHEST PAIN [None]
